FAERS Safety Report 9252440 (Version 1)
Quarter: 2013Q1

REPORT INFORMATION
  Report Type: Spontaneous
  Country: US (occurrence: None)
  Receive Date: 20130305
  Receipt Date: 20130305
  Transmission Date: 20140127
  Serious: Yes (Hospitalization, Other)
  Sender: FDA-Public Use
  Company Number: 163-21880-12083020

PATIENT
  Age: 46 Year
  Sex: Female
  Weight: 61 kg

DRUGS (8)
  1. REVLIMID [Suspect]
     Indication: PLASMA CELL MYELOMA
     Dosage: 25 MG, 1 IN 1 D, PO
     Route: 048
     Dates: start: 201112
  2. VALACYCLOVIR [Suspect]
  3. PROCHLORPERAZINE [Suspect]
  4. OXYCONTIN (OXYCODONE HYDROCHLORIDE) [Suspect]
  5. ENOXAPARIN (ENOXAPARIN) [Suspect]
  6. OXYCODONE (OXYCODONE) [Suspect]
  7. LEXAPRO [Suspect]
  8. PROTONIX [Suspect]

REACTIONS (2)
  - Herpes zoster [None]
  - Thrombosis [None]
